FAERS Safety Report 7244818-9 (Version None)
Quarter: 2011Q1

REPORT INFORMATION
  Report Type: 
  Country: None (occurrence: None)
  Receive Date: 20110126
  Receipt Date: 20110112
  Transmission Date: 20110831
  Serious: Yes (Other)
  Sender: FDA-Public Use
  Company Number: US-JNJFOC-20110103935

PATIENT
  Age: 17 Year
  Sex: Male

DRUGS (1)
  1. DORIBAX [Suspect]
     Indication: ENTEROBACTER SEPSIS
     Route: 041

REACTIONS (5)
  - ARTHRALGIA [None]
  - ARTHROPATHY [None]
  - PYREXIA [None]
  - OROPHARYNGEAL PAIN [None]
  - RASH [None]
